FAERS Safety Report 7676790-1 (Version None)
Quarter: 2011Q3

REPORT INFORMATION
  Report Type: 
  Country: None (occurrence: None)
  Receive Date: 20110811
  Receipt Date: 20110805
  Transmission Date: 20111222
  Serious: Yes (Life-Threatening)
  Sender: FDA-Public Use
  Company Number: GB-SANOFI-AVENTIS-2011SA050511

PATIENT
  Age: 43 Year
  Sex: Female
  Weight: 70.9 kg

DRUGS (5)
  1. LANSOPRAZOLE [Concomitant]
  2. HARPAGOPHYTUM PROCUMBENS [Concomitant]
  3. ETODOLAC [Concomitant]
  4. LEFLUNOMIDE [Suspect]
     Route: 048
  5. CETIRIZINE HCL [Concomitant]

REACTIONS (2)
  - RENAL CELL CARCINOMA [None]
  - ARTHRALGIA [None]
